FAERS Safety Report 25871583 (Version 1)
Quarter: 2025Q4

REPORT INFORMATION
  Report Type: Spontaneous
  Country: EU (occurrence: EU)
  Receive Date: 20251001
  Receipt Date: 20251001
  Transmission Date: 20260117
  Serious: Yes (Death)
  Sender: BEIGENE
  Company Number: EU-BEIGENE-BGN-2025-016988

PATIENT
  Age: 80 Year

DRUGS (1)
  1. BRUKINSA [Suspect]
     Active Substance: ZANUBRUTINIB
     Indication: Non-Hodgkin^s lymphoma

REACTIONS (1)
  - Colorectal cancer metastatic [Fatal]
